FAERS Safety Report 5462985-4 (Version None)
Quarter: 2007Q3

REPORT INFORMATION
  Report Type: 
  Country: None (occurrence: None)
  Receive Date: 20070920
  Receipt Date: 20070912
  Transmission Date: 20080115
  Serious: Yes (Death, Other)
  Sender: FDA-Public Use
  Company Number: AU-AMGEN-US242095

PATIENT
  Sex: Female

DRUGS (6)
  1. ARANESP [Suspect]
     Indication: RENAL FAILURE CHRONIC
     Route: 042
     Dates: start: 20051201
  2. DIGOXIN [Concomitant]
     Route: 065
  3. LASIX [Concomitant]
     Route: 065
  4. NEXIUM [Concomitant]
     Route: 065
  5. PLAVIX [Concomitant]
     Route: 065
  6. ZYLOPRIM [Concomitant]
     Route: 065

REACTIONS (2)
  - ACCIDENTAL OVERDOSE [None]
  - ACUTE MYOCARDIAL INFARCTION [None]
